FAERS Safety Report 13020279 (Version 3)
Quarter: 2016Q4

REPORT INFORMATION
  Report Type: Report from Study
  Country: RU (occurrence: RU)
  Receive Date: 20161212
  Receipt Date: 20161226
  Transmission Date: 20170207
  Serious: Yes (Life-Threatening, Hospitalization)
  Sender: FDA-Public Use
  Company Number: RU-ASTRAZENECA-2016SF31008

PATIENT
  Age: 24302 Day
  Sex: Female

DRUGS (9)
  1. ACECARDOL [Concomitant]
     Active Substance: ASPIRIN
     Indication: HYPERCOAGULATION
     Route: 048
  2. BETALOC ZOC [Concomitant]
     Indication: HYPERTENSION
     Route: 048
  3. LEVEMIR [Concomitant]
     Active Substance: INSULIN DETEMIR
     Route: 058
     Dates: start: 20160108
  4. DAPAGLIFLOZIN [Suspect]
     Active Substance: DAPAGLIFLOZIN
     Indication: TYPE 2 DIABETES MELLITUS
     Route: 048
     Dates: start: 20140617, end: 20150120
  5. SINVASTATIN [Concomitant]
     Active Substance: SIMVASTATIN
     Route: 048
  6. APIDRA [Concomitant]
     Active Substance: INSULIN GLULISINE
     Route: 058
     Dates: start: 20160108
  7. VALE VALSARTAN+GYDROCHORTIASID [Concomitant]
     Indication: HYPERTENSION
     Route: 048
  8. VEROSPIRON [Concomitant]
     Active Substance: SPIRONOLACTONE
     Indication: HYPERTENSION
     Route: 048
  9. METPHOMIN [Concomitant]
     Indication: DIABETES MELLITUS
     Route: 048

REACTIONS (1)
  - Pneumonia [Recovered/Resolved]

NARRATIVE: CASE EVENT DATE: 20161112
